FAERS Safety Report 8048912-4 (Version None)
Quarter: 2012Q1

REPORT INFORMATION
  Report Type: 
  Country: None (occurrence: None)
  Receive Date: 20120117
  Receipt Date: 20120110
  Transmission Date: 20120608
  Serious: Yes (Hospitalization)
  Sender: FDA-Public Use
  Company Number: PL-SANOFI-AVENTIS-2012SA002072

PATIENT
  Age: 36 Year
  Sex: Female

DRUGS (7)
  1. ANTIHYPERTENSIVES [Concomitant]
     Indication: HELLP SYNDROME
  2. ENOXAPARIN SODIUM [Suspect]
     Indication: HELLP SYNDROME
     Route: 058
  3. HEPARIN [Concomitant]
     Dosage: ROUTE: SUBCUTANEOUS
  4. IMMUNE GLOBULIN NOS [Concomitant]
     Indication: HELLP SYNDROME
     Route: 042
  5. ENOXAPARIN SODIUM [Suspect]
     Route: 058
  6. ENOXAPARIN SODIUM [Suspect]
     Route: 058
  7. CORTICOSTEROIDS [Concomitant]
     Indication: HELLP SYNDROME

REACTIONS (2)
  - MATERNAL EXPOSURE DURING PREGNANCY [None]
  - FOETAL DEATH [None]
